FAERS Safety Report 5273985-1 (Version None)
Quarter: 2007Q1

REPORT INFORMATION
  Report Type: 
  Country: None (occurrence: None)
  Receive Date: 20070323
  Receipt Date: 20070322
  Transmission Date: 20070707
  Serious: Yes (Other)
  Sender: FDA-Public Use
  Company Number: DE-GLAXOSMITHKLINE-B0441660A

PATIENT
  Age: 32 Year
  Sex: Male

DRUGS (5)
  1. KIVEXA [Suspect]
     Indication: HIV INFECTION
     Route: 048
     Dates: start: 20060823
  2. COMBIVIR [Concomitant]
     Dates: start: 20060101, end: 20060822
  3. IBUPROFEN [Concomitant]
     Dates: start: 20060622
  4. SERETIDE FORTE [Concomitant]
     Dates: start: 20060721
  5. BRAUNOVIDON [Concomitant]
     Dates: start: 20060725, end: 20060823

REACTIONS (7)
  - ABDOMINAL PAIN UPPER [None]
  - BLOOD BILIRUBIN INCREASED [None]
  - BLOOD CREATINE PHOSPHOKINASE INCREASED [None]
  - HEADACHE [None]
  - HYPERCHOLESTEROLAEMIA [None]
  - HYPERTRIGLYCERIDAEMIA [None]
  - WOUND INFECTION [None]
